FAERS Safety Report 10515563 (Version 2)
Quarter: 2014Q4

REPORT INFORMATION
  Report Type: Spontaneous
  Country: US (occurrence: None)
  Receive Date: 20141009
  Receipt Date: 20141104
  Transmission Date: 20150528
  Serious: Yes (Hospitalization)
  Sender: FDA-Public Use
  Company Number: 14AE044

PATIENT
  Age: 52 Year
  Sex: Female

DRUGS (12)
  1. LORAZEPAM. [Concomitant]
     Active Substance: LORAZEPAM
  2. LESS DROWSY MOTION SICKNESS RELIEF [Suspect]
     Active Substance: MECLIZINE HYDROCHLORIDE
     Dosage: 1/2 TABLET ONCE BY MOUTH
     Route: 048
     Dates: start: 20140922
  3. VALIUM [Concomitant]
     Active Substance: DIAZEPAM
  4. PRAVASTATIN [Concomitant]
     Active Substance: PRAVASTATIN\PRAVASTATIN SODIUM
  5. WARFARIN [Concomitant]
     Active Substance: WARFARIN
  6. PEPCID [Concomitant]
     Active Substance: FAMOTIDINE
  7. AMITRIPTYLINE [Concomitant]
     Active Substance: AMITRIPTYLINE
  8. COUMADIN [Concomitant]
     Active Substance: WARFARIN SODIUM
  9. 81 MG ASPIRIN [Concomitant]
  10. LORAZEPAM. [Concomitant]
     Active Substance: LORAZEPAM
  11. LISINOPRIL. [Concomitant]
     Active Substance: LISINOPRIL
  12. FENOFIBRATE. [Concomitant]
     Active Substance: FENOFIBRATE

REACTIONS (1)
  - Cardiac flutter [None]

NARRATIVE: CASE EVENT DATE: 20140922
